FAERS Safety Report 5775132-6 (Version None)
Quarter: 2008Q2

REPORT INFORMATION
  Report Type: 
  Country: None (occurrence: None)
  Receive Date: 20080617
  Receipt Date: 20080605
  Transmission Date: 20081010
  Serious: Yes (Death)
  Sender: FDA-Public Use
  Company Number: JP-WYE-H03857108

PATIENT
  Sex: Male

DRUGS (8)
  1. AMIODARONE HCL [Suspect]
     Indication: VENTRICULAR TACHYCARDIA
     Route: 048
     Dates: start: 20071117, end: 20071201
  2. AMIODARONE HCL [Suspect]
     Route: 048
     Dates: start: 20071202, end: 20080406
  3. ASPIRIN [Concomitant]
     Indication: MYOCARDIAL INFARCTION
     Route: 048
     Dates: start: 20071108
  4. LENDORMIN [Concomitant]
     Indication: INSOMNIA
     Dosage: 0.25 MG AS NEEDED
     Route: 048
  5. PROTECADIN [Concomitant]
     Indication: GASTRITIS
     Route: 048
     Dates: start: 20080325
  6. WARFARIN SODIUM [Concomitant]
     Indication: ATRIAL FIBRILLATION
     Route: 048
     Dates: start: 20071110
  7. CARVEDILOL [Concomitant]
     Indication: CARDIAC FAILURE
     Route: 048
     Dates: start: 20071112
  8. VASOLAN [Concomitant]
     Indication: ATRIAL FIBRILLATION
     Route: 048
     Dates: start: 20071108

REACTIONS (3)
  - CARDIAC FAILURE [None]
  - CONDITION AGGRAVATED [None]
  - INTERSTITIAL LUNG DISEASE [None]
